FAERS Safety Report 23428966 (Version 1)
Quarter: 2024Q1

REPORT INFORMATION
  Report Type: Spontaneous
  Country: US (occurrence: None)
  Receive Date: 20240122
  Receipt Date: 20240122
  Transmission Date: 20240409
  Serious: No
  Sender: FDA-Public Use
  Company Number: None

PATIENT
  Age: 84 Year
  Sex: Female
  Weight: 59.87 kg

DRUGS (1)
  1. ORENCIA [Suspect]
     Active Substance: ABATACEPT
     Indication: Rheumatoid arthritis
     Dosage: INFUSE 750MG INTRAVENOUSLY OVER 1 HOUR EVERY 28 DAYS AS DIRECTED.
     Route: 042
     Dates: start: 202303

REACTIONS (1)
  - Urinary tract infection [None]
